FAERS Safety Report 7323973-6 (Version None)
Quarter: 2011Q1

REPORT INFORMATION
  Report Type: 
  Country: None (occurrence: None)
  Receive Date: 20110301
  Receipt Date: 20110223
  Transmission Date: 20110831
  Serious: Yes (Life-Threatening, Hospitalization)
  Sender: FDA-Public Use
  Company Number: B0702812A

PATIENT
  Age: 4 Year
  Sex: Male

DRUGS (2)
  1. METHYLPREDNISOLONE [Concomitant]
     Indication: PERITONSILLAR ABSCESS
     Dosage: 30MG PER DAY
     Route: 042
     Dates: start: 20110223, end: 20110223
  2. ZINACEF [Suspect]
     Indication: PERITONSILLAR ABSCESS
     Dosage: 1.5G PER DAY
     Route: 042
     Dates: start: 20110223, end: 20110223

REACTIONS (6)
  - LOSS OF CONSCIOUSNESS [None]
  - DYSPNOEA [None]
  - CYANOSIS [None]
  - ANAPHYLACTIC SHOCK [None]
  - VOMITING [None]
  - RESTLESSNESS [None]
